FAERS Safety Report 22223322 (Version 1)
Quarter: 2023Q2

REPORT INFORMATION
  Report Type: Spontaneous
  Country: US (occurrence: None)
  Receive Date: 20230415
  Receipt Date: 20230415
  Transmission Date: 20230721
  Serious: Yes (Death)
  Sender: FDA-Public Use
  Company Number: None

PATIENT
  Age: 79 Year
  Sex: Female
  Weight: 49.9 kg

DRUGS (7)
  1. CAPECITABINE [Suspect]
     Active Substance: CAPECITABINE
     Indication: Cholangiocarcinoma
     Dosage: FREQUENCY : DAILY; 14 DAYS ON, 7 D OFF?
     Route: 048
     Dates: start: 202303
  2. CALCIUM [Concomitant]
     Active Substance: CALCIUM
  3. MYLANTA [Concomitant]
     Active Substance: ALUMINUM HYDROXIDE\DIMETHICONE\MAGNESIUM HYDROXIDE
  4. NORCO [Concomitant]
     Active Substance: ACETAMINOPHEN\HYDROCODONE BITARTRATE
  5. ONDANSETRON [Concomitant]
     Active Substance: ONDANSETRON
  6. PEPCID [Concomitant]
     Active Substance: FAMOTIDINE
  7. TRIAMCINOLONE [Concomitant]
     Active Substance: TRIAMCINOLONE

REACTIONS (1)
  - Death [None]

NARRATIVE: CASE EVENT DATE: 20230323
